FAERS Safety Report 4471847-0 (Version None)
Quarter: 2004Q4

REPORT INFORMATION
  Report Type: 
  Country: None (occurrence: None)
  Receive Date: 20041007
  Receipt Date: 20040921
  Transmission Date: 20050328
  Serious: Yes (Hospitalization)
  Sender: FDA-Public Use
  Company Number: DSA_25027_2004

PATIENT
  Age: 78 Year
  Sex: Female

DRUGS (10)
  1. TEMESTA [Suspect]
     Dosage: 1 MG Q DAY PO
     Route: 048
  2. DILTIAZEM HYDROCHLORIDE [Suspect]
     Indication: ANGINA PECTORIS
     Dosage: 300 MG Q DAY PO
     Route: 048
  3. DILTIAZEM HYDROCHLORIDE [Suspect]
     Indication: HYPERTENSION
     Dosage: 300 MG Q DAY PO
     Route: 048
  4. ISOCARD [Suspect]
     Indication: ANGINA PECTORIS
  5. CELUPRANE [Suspect]
     Indication: ANGINA PECTORIS
  6. CELUPRANE [Suspect]
     Indication: HYPERTENSION
  7. KARDEGIC    /FRA/ [Suspect]
     Indication: ANGINA PECTORIS
     Dosage: 75 MG Q DAY PO
     Route: 048
  8. OGAST [Suspect]
  9. TRIATEC [Suspect]
     Indication: HYPERTENSION
     Dosage: 2.5 MG Q DAY PO
     Route: 048
  10. AMILORIDE HCL W/ HYDROCHLOROTHIAZIDE [Concomitant]

REACTIONS (3)
  - HYPERKERATOSIS [None]
  - LICHEN PLANUS [None]
  - ONYCHOLYSIS [None]
